FAERS Safety Report 5715427-5 (Version None)
Quarter: 2008Q2

REPORT INFORMATION
  Report Type: 
  Country: None (occurrence: None)
  Receive Date: 20080422
  Receipt Date: 20080409
  Transmission Date: 20081010
  Serious: Yes (Hospitalization)
  Sender: FDA-Public Use
  Company Number: 2008BI009541

PATIENT
  Age: 54 Year
  Sex: Female
  Weight: 54.4316 kg

DRUGS (3)
  1. AVONEX [Suspect]
     Indication: MULTIPLE SCLEROSIS
     Dosage: 30 UG;QW;IM
     Route: 030
     Dates: start: 19961001
  2. ASPIRIN [Concomitant]
  3. BACLOFEN [Concomitant]

REACTIONS (13)
  - BLOOD CHOLESTEROL INCREASED [None]
  - DEAFNESS [None]
  - ERYTHEMA [None]
  - GAIT DISTURBANCE [None]
  - HEMIPARESIS [None]
  - INFLUENZA LIKE ILLNESS [None]
  - LACERATION [None]
  - LIMB INJURY [None]
  - MUSCLE ATROPHY [None]
  - PAIN IN EXTREMITY [None]
  - ROAD TRAFFIC ACCIDENT [None]
  - SEVERED DIGIT REIMPLANTATION [None]
  - WEIGHT DECREASED [None]
